FAERS Safety Report 18109064 (Version 2)
Quarter: 2020Q4

REPORT INFORMATION
  Report Type: Report from Study
  Country: FR (occurrence: FR)
  Receive Date: 20200804
  Receipt Date: 20201026
  Transmission Date: 20210113
  Serious: Yes (Other)
  Sender: FDA-Public Use
  Company Number: FR-ROCHE-2599060

PATIENT
  Age: 70 Year
  Sex: Male

DRUGS (8)
  1. TOCILIZUMAB. [Suspect]
     Active Substance: TOCILIZUMAB
     Indication: COVID-19
     Dosage: 20 MG/ML
     Route: 042
     Dates: start: 20200406, end: 20200406
  2. TOCILIZUMAB. [Suspect]
     Active Substance: TOCILIZUMAB
     Route: 042
     Dates: start: 20200405
  3. ENOXAPARIN [Suspect]
     Active Substance: ENOXAPARIN
     Indication: COVID-19
     Route: 065
     Dates: start: 20200405
  4. ELIQUIS [Concomitant]
     Active Substance: APIXABAN
  5. LANSOPRAZOLE. [Concomitant]
     Active Substance: LANSOPRAZOLE
  6. TOCILIZUMAB. [Suspect]
     Active Substance: TOCILIZUMAB
     Dosage: 20 MG/ML
     Route: 042
     Dates: start: 20200406
  7. AMLOR [Concomitant]
     Active Substance: AMLODIPINE BESYLATE
  8. LOVENOX [Concomitant]
     Active Substance: ENOXAPARIN SODIUM
     Indication: THROMBOSIS PROPHYLAXIS
     Route: 058
     Dates: start: 20200405, end: 20200423

REACTIONS (5)
  - Enterobacter pneumonia [Recovered/Resolved]
  - Gastric ulcer haemorrhage [Recovered/Resolved]
  - Pneumonia bacterial [Recovered/Resolved]
  - Septic shock [Recovered/Resolved]
  - Pneumonia klebsiella [Recovered/Resolved]

NARRATIVE: CASE EVENT DATE: 20200410
